FAERS Safety Report 15703443 (Version 1)
Quarter: 2018Q4

REPORT INFORMATION
  Report Type: Spontaneous
  Country: IT (occurrence: IT)
  Receive Date: 20181210
  Receipt Date: 20181210
  Transmission Date: 20190205
  Serious: Yes (Death, Other)
  Sender: FDA-Public Use
  Company Number: IT-ASTELLAS-2018US051680

PATIENT
  Age: 9 Year
  Sex: Female

DRUGS (1)
  1. TACROLIMUS. [Suspect]
     Active Substance: TACROLIMUS
     Indication: PEMPHIGOID
     Dosage: UNK, UNKNOWN FREQ.
     Route: 065

REACTIONS (3)
  - Product use in unapproved indication [Unknown]
  - Eye disorder [Unknown]
  - Death [Fatal]
